FAERS Safety Report 15464661 (Version 2)
Quarter: 2019Q1

REPORT INFORMATION
  Report Type: Spontaneous
  Country: US (occurrence: US)
  Receive Date: 20181004
  Receipt Date: 20190131
  Transmission Date: 20190417
  Serious: Yes (Hospitalization)
  Sender: FDA-Public Use
  Company Number: US-MELINTA-US-MLNT-18-00313

PATIENT
  Age: 81 Year
  Sex: Male

DRUGS (2)
  1. ORBACTIV [Suspect]
     Active Substance: ORITAVANCIN
     Dosage: 1200 MG/1000 ML
     Route: 041
     Dates: start: 20180907, end: 20180907
  2. ORBACTIV [Suspect]
     Active Substance: ORITAVANCIN
     Indication: ANTIBIOTIC THERAPY
     Dosage: THE PATIENT RECEIVED APPROXIMATELY 275 CC
     Route: 041
     Dates: start: 20180919, end: 20180919

REACTIONS (3)
  - Fluid overload [Recovered/Resolved]
  - Off label use [Recovered/Resolved]
  - Cardiac failure congestive [Recovered/Resolved]

NARRATIVE: CASE EVENT DATE: 20180919
